FAERS Safety Report 5056998-4 (Version None)
Quarter: 2006Q2

REPORT INFORMATION
  Report Type: 
  Country: None (occurrence: None)
  Receive Date: 20060622
  Receipt Date: 20050720
  Transmission Date: 20061013
  Serious: Yes (Other)
  Sender: FDA-Public Use
  Company Number: US-JNJFOC-20050704452

PATIENT
  Age: 80 Year
  Sex: Female
  Weight: 79.3795 kg

DRUGS (14)
  1. FENTANYL TRANSDERMAL SYSTEM [Suspect]
     Indication: PAIN
     Dosage: SEE IMAGE
     Route: 062
     Dates: start: 20050601, end: 20050601
  2. FENTANYL TRANSDERMAL SYSTEM [Suspect]
     Indication: PAIN
     Dosage: SEE IMAGE
     Route: 062
     Dates: start: 20050601, end: 20050701
  3. FENTANYL TRANSDERMAL SYSTEM [Suspect]
     Indication: PAIN
     Dosage: SEE IMAGE
     Route: 062
     Dates: start: 20050701
  4. PREDNISONE (TABLETS) PREDNISONE [Concomitant]
  5. ZETIA (TABLETS) CHOLESTEROL- AND TRIGLYCERIDE REDUCERS [Concomitant]
  6. LESCHOL (FLUVASTATIN SODIUM) TABLETS [Concomitant]
  7. LEVOXYL (LEVOHYROXINE SODIUM) TABLETS [Concomitant]
  8. NEXIUM [Concomitant]
  9. PROZAC (FLUOXETINE HYDROCHLORIDE) CAPSULES [Concomitant]
  10. ACCUPRIL (QUINAPRIL HYDROCHLORIDE) CAPSULES [Concomitant]
  11. LORAZEPAM (LORAZEPAM) TABLETS [Concomitant]
  12. VICODIN HP (VICODIN) TABLES [Concomitant]
  13. NEURONTIN [Concomitant]
  14. AMBIEN [Concomitant]

REACTIONS (10)
  - AMNESIA [None]
  - ANOREXIA [None]
  - ASTHENIA [None]
  - DIARRHOEA [None]
  - FALL [None]
  - HEAD INJURY [None]
  - LISTLESS [None]
  - LOSS OF CONSCIOUSNESS [None]
  - NAUSEA [None]
  - RETCHING [None]
